FAERS Safety Report 19083240 (Version 1)
Quarter: 2021Q2

REPORT INFORMATION
  Report Type: Spontaneous
  Country: US (occurrence: US)
  Receive Date: 20210401
  Receipt Date: 20210401
  Transmission Date: 20210717
  Serious: Yes (Life-Threatening, Disabling)
  Sender: FDA-Public Use
  Company Number: None

PATIENT
  Age: 43 Year
  Sex: Female
  Weight: 85.5 kg

DRUGS (1)
  1. LEVAQUIN [Suspect]
     Active Substance: LEVOFLOXACIN
     Indication: CYSTITIS
     Route: 048

REACTIONS (8)
  - Heart rate decreased [None]
  - Tendon pain [None]
  - Anxiety [None]
  - Adverse reaction [None]
  - Muscle atrophy [None]
  - Palpitations [None]
  - Feeling abnormal [None]
  - Candida infection [None]

NARRATIVE: CASE EVENT DATE: 20200801
